FAERS Safety Report 8238828-2 (Version None)
Quarter: 2012Q1

REPORT INFORMATION
  Report Type: 
  Country: None (occurrence: None)
  Receive Date: 20120327
  Receipt Date: 20120327
  Transmission Date: 20120608
  Serious: Yes (Hospitalization, Other)
  Sender: FDA-Public Use
  Company Number: FR-PFIZER INC-2012004098

PATIENT
  Sex: Male

DRUGS (10)
  1. LANTUS [Suspect]
     Indication: TYPE 1 DIABETES MELLITUS
     Dosage: UNK
     Route: 058
     Dates: start: 20070101
  2. SEREVENT [Concomitant]
  3. ATORVASTATIN [Suspect]
     Indication: HYPERCHOLESTEROLAEMIA
     Dosage: UNK
     Route: 048
  4. TEGRETOL [Suspect]
     Indication: BIPOLAR I DISORDER
     Dosage: 800 MG, 1X/DAY
     Route: 048
  5. NOCTAMID [Suspect]
     Indication: BIPOLAR I DISORDER
     Dosage: UNK
     Route: 048
     Dates: start: 20090101, end: 20111101
  6. SINGULAIR [Concomitant]
     Dosage: UNK
  7. AIROMIR [Concomitant]
  8. VALPROIC ACID [Suspect]
     Indication: BIPOLAR I DISORDER
     Dosage: 300 MG, THREE TIMES DAILY
     Route: 048
  9. ESOMEPRAZOLE [Suspect]
     Dosage: UNK
     Route: 048
  10. NASONEX [Concomitant]
     Dosage: UNK
     Dates: start: 20110101

REACTIONS (4)
  - NASAL OBSTRUCTION [None]
  - OBSTRUCTIVE AIRWAYS DISORDER [None]
  - NASAL POLYPS [None]
  - ASTHMA [None]
